FAERS Safety Report 15867058 (Version 1)
Quarter: 2019Q1

REPORT INFORMATION
  Report Type: Spontaneous
  Country: US (occurrence: US)
  Receive Date: 20190125
  Receipt Date: 20190125
  Transmission Date: 20190417
  Serious: Yes (Hospitalization, Other)
  Sender: FDA-Public Use
  Company Number: US-INDICUS PHARMA-000569

PATIENT
  Age: 50 Year
  Sex: Female
  Weight: 30 kg

DRUGS (1)
  1. METFORMIN [Suspect]
     Active Substance: METFORMIN HYDROCHLORIDE
     Dosage: TWO 850 MG METFORMIN TABLETS SEVERAL TIMES DAILY

REACTIONS (3)
  - Drug abuse [Unknown]
  - Acute kidney injury [Unknown]
  - Lactic acidosis [Unknown]
